FAERS Safety Report 7456314 (Version 7)
Quarter: 2021Q4

REPORT INFORMATION
  Report Type: Report from Study
  Country: DE (occurrence: DE)
  Receive Date: 20100707
  Receipt Date: 20211111
  Transmission Date: 20220303
  Serious: Yes (Death, Life-Threatening, Hospitalization, Other)
  Sender: FDA-Public Use
  Company Number: DE-CELGENE-062-21880-10063074

PATIENT
  Age: 71 Year
  Sex: Male
  Weight: 104 kg

DRUGS (7)
  1. REVLIMID [Suspect]
     Active Substance: LENALIDOMIDE
     Indication: Plasma cell myeloma
     Dosage: 25 MILLIGRAM
     Route: 048
     Dates: start: 20100618, end: 20100628
  2. DEXAMETHASONE [Suspect]
     Active Substance: DEXAMETHASONE
     Indication: Plasma cell myeloma
     Dosage: 40 MILLIGRAM
     Route: 048
     Dates: start: 20100618, end: 20100625
  3. AMLODIPINE [Concomitant]
     Active Substance: AMLODIPINE BESYLATE
     Indication: Hypertension
     Dosage: 7.5 MILLIGRAM
     Route: 048
  4. NALOXONE HYDROCHLORIDE\OXYCODONE HYDROCHLORIDE [Concomitant]
     Active Substance: NALOXONE HYDROCHLORIDE\OXYCODONE HYDROCHLORIDE
     Indication: Pain
     Dosage: 30 MILLIGRAM
     Route: 048
  5. TEGRETOL [Concomitant]
     Active Substance: CARBAMAZEPINE
     Indication: Product used for unknown indication
     Dosage: 900 MILLIGRAM
     Route: 048
  6. NADROPARIN CALCIUM [Concomitant]
     Active Substance: NADROPARIN CALCIUM
     Indication: Prophylaxis
     Dosage: 30 MILLIGRAM
     Route: 058
  7. NOVALGIN [Concomitant]
     Indication: Pain
     Route: 048

REACTIONS (4)
  - Sepsis [Fatal]
  - Cardiopulmonary failure [Fatal]
  - Pyelonephritis acute [Unknown]
  - Pneumonia [Unknown]

NARRATIVE: CASE EVENT DATE: 20100629
